FAERS Safety Report 24774740 (Version 1)
Quarter: 2024Q4

REPORT INFORMATION
  Report Type: Spontaneous
  Country: NL (occurrence: NL)
  Receive Date: 20241226
  Receipt Date: 20241226
  Transmission Date: 20250114
  Serious: Yes (Death)
  Sender: UCB
  Company Number: NL-UCBSA-2024067552

PATIENT

DRUGS (1)
  1. KEPPRA [Suspect]
     Active Substance: LEVETIRACETAM
     Indication: Product used for unknown indication
     Dosage: UNK
     Route: 042
     Dates: end: 20241209

REACTIONS (2)
  - Death [Fatal]
  - Dysphagia [Unknown]

NARRATIVE: CASE EVENT DATE: 20241209
